FAERS Safety Report 6858126-9 (Version None)
Quarter: 2010Q3

REPORT INFORMATION
  Report Type: 
  Country: None (occurrence: None)
  Receive Date: 20100719
  Receipt Date: 20080128
  Transmission Date: 20110219
  Serious: No
  Sender: FDA-Public Use
  Company Number: US-PFIZER INC-2008010767

PATIENT
  Age: 38 Year
  Sex: Female
  Weight: 57.8 kg

DRUGS (2)
  1. CHANTIX [Suspect]
     Indication: SMOKING CESSATION THERAPY
     Route: 048
     Dates: start: 20080115
  2. VITAMINS [Concomitant]

REACTIONS (4)
  - ABDOMINAL DISCOMFORT [None]
  - ASTHENIA [None]
  - DIZZINESS [None]
  - MOOD SWINGS [None]
